FAERS Safety Report 11427971 (Version 1)
Quarter: 2015Q3

REPORT INFORMATION
  Report Type: Spontaneous
  Country: US (occurrence: None)
  Receive Date: 20150827
  Receipt Date: 20150827
  Transmission Date: 20151125
  Serious: Yes (Disabling)
  Sender: FDA-Public Use
  Company Number: None

PATIENT
  Age: 65 Year
  Sex: Male
  Weight: 65.4 kg

DRUGS (12)
  1. CHLORHEXIDINE GLUCONATE. [Concomitant]
     Active Substance: CHLORHEXIDINE GLUCONATE
  2. AMIODARONE [Concomitant]
     Active Substance: AMIODARONE
  3. AMIODARONE [Suspect]
     Active Substance: AMIODARONE
     Route: 042
     Dates: start: 20150318, end: 20150402
  4. MIDAZOLAM [Concomitant]
     Active Substance: MIDAZOLAM\MIDAZOLAM HYDROCHLORIDE
  5. BISACODYL. [Concomitant]
     Active Substance: BISACODYL
  6. CEFEPIME [Concomitant]
     Active Substance: CEFEPIME HYDROCHLORIDE
  7. DIGOXIN. [Concomitant]
     Active Substance: DIGOXIN
  8. HEPARIN [Concomitant]
     Active Substance: HEPARIN SODIUM
  9. DOCUSATE SODIUM. [Concomitant]
     Active Substance: DOCUSATE SODIUM
  10. INSULIN [Concomitant]
     Active Substance: INSULIN NOS
  11. HYDROCORTISONE. [Concomitant]
     Active Substance: HYDROCORTISONE
  12. MAGNESIUM SULFATE. [Concomitant]
     Active Substance: MAGNESIUM SULFATE

REACTIONS (3)
  - Infusion site extravasation [None]
  - Arm amputation [None]
  - Compartment syndrome [None]

NARRATIVE: CASE EVENT DATE: 20150322
